FAERS Safety Report 8546638-1 (Version None)
Quarter: 2012Q3

REPORT INFORMATION
  Report Type: 
  Country: None (occurrence: None)
  Receive Date: 20120727
  Receipt Date: 20120713
  Transmission Date: 20120928
  Serious: Yes (Disabling)
  Sender: FDA-Public Use
  Company Number: GB-WATSON-2012-12903

PATIENT
  Age: 52 Year
  Sex: Female
  Weight: 136.52 kg

DRUGS (1)
  1. RAMIPRIL [Suspect]
     Indication: HYPERTENSION
     Dosage: 10 MG, UNKNOWN
     Route: 048
     Dates: start: 20120403

REACTIONS (5)
  - ALOPECIA [None]
  - DEPRESSED MOOD [None]
  - LETHARGY [None]
  - DISTURBANCE IN ATTENTION [None]
  - JOINT STIFFNESS [None]
